FAERS Safety Report 6172212-0 (Version None)
Quarter: 2009Q2

REPORT INFORMATION
  Report Type: 
  Country: None (occurrence: None)
  Receive Date: 20090427
  Receipt Date: 20090427
  Transmission Date: 20091009
  Serious: Yes (Other)
  Sender: FDA-Public Use
  Company Number: None

PATIENT

DRUGS (1)
  1. ISOVUE-300 [Suspect]
     Indication: COMPUTERISED TOMOGRAM
     Dosage: 150 ML NOW IV, 1 BOTTLE EACH PATIENT
     Route: 042
     Dates: start: 20090420, end: 20090422

REACTIONS (1)
  - PRODUCT QUALITY ISSUE [None]
